FAERS Safety Report 10450367 (Version 1)
Quarter: 2014Q3

REPORT INFORMATION
  Report Type: Spontaneous
  Country: US (occurrence: US)
  Receive Date: 20140912
  Receipt Date: 20140912
  Transmission Date: 20150326
  Serious: Yes (Hospitalization, Other)
  Sender: FDA-Public Use
  Company Number: US-PFIZER INC-2014253845

PATIENT
  Age: 45 Year
  Sex: Female
  Weight: 68.03 kg

DRUGS (3)
  1. ZOLOFT [Suspect]
     Active Substance: SERTRALINE HYDROCHLORIDE
     Indication: PANIC DISORDER
     Dosage: 25 MG, 1X/DAY
     Route: 048
     Dates: start: 2005, end: 201405
  2. ZOLOFT [Suspect]
     Active Substance: SERTRALINE HYDROCHLORIDE
     Dosage: 25 MG, 1X/DAY
     Route: 048
     Dates: start: 201409
  3. SYNTHROID [Concomitant]
     Active Substance: LEVOTHYROXINE SODIUM
     Dosage: UNK

REACTIONS (8)
  - Tremor [Unknown]
  - Dizziness [Unknown]
  - Abdominal distension [Unknown]
  - Serotonin syndrome [Unknown]
  - Balance disorder [Unknown]
  - Anxiety [Unknown]
  - Muscle tightness [Unknown]
  - Dizziness [Unknown]

NARRATIVE: CASE EVENT DATE: 201405
